FAERS Safety Report 20088885 (Version 1)
Quarter: 2021Q4

REPORT INFORMATION
  Report Type: Spontaneous
  Country: US (occurrence: US)
  Receive Date: 20211119
  Receipt Date: 20211119
  Transmission Date: 20220303
  Serious: No
  Sender: FDA-Public Use
  Company Number: US-009507513-2110USA006078

PATIENT
  Age: 60 Year
  Sex: Male

DRUGS (5)
  1. TEMODAR [Suspect]
     Active Substance: TEMOZOLOMIDE
     Indication: Malignant melanoma stage III
     Dosage: UNK
  2. CISPLATIN [Concomitant]
     Active Substance: CISPLATIN
     Indication: Malignant melanoma stage III
     Dosage: UNK
  3. VINBLASTINE [Concomitant]
     Active Substance: VINBLASTINE
     Indication: Malignant melanoma stage III
     Dosage: UNK
  4. ALDESLEUKIN [Concomitant]
     Active Substance: ALDESLEUKIN
     Indication: Malignant melanoma stage III
     Dosage: UNK
  5. INTRON A [Concomitant]
     Active Substance: INTERFERON ALFA-2B
     Indication: Malignant melanoma stage III
     Dosage: UNK

REACTIONS (1)
  - Product use in unapproved indication [Unknown]
